FAERS Safety Report 8445181-8 (Version None)
Quarter: 2012Q2

REPORT INFORMATION
  Report Type: 
  Country: None (occurrence: None)
  Receive Date: 20120608
  Receipt Date: 20120529
  Transmission Date: 20120825
  Serious: Yes (Other)
  Sender: FDA-Public Use
  Company Number: 2012SP029138

PATIENT
  Sex: Female

DRUGS (4)
  1. PEG-INTRON [Suspect]
     Indication: HEPATITIS C
     Dates: start: 20030101, end: 20030701
  2. PEG-INTRON [Suspect]
     Indication: HEPATITIS C
     Dates: start: 20120214
  3. RIBAVIRIN [Suspect]
     Indication: HEPATITIS C
     Dates: start: 20120214
  4. RIBAVIRIN [Suspect]
     Indication: HEPATITIS C
     Dates: start: 20030101, end: 20030701

REACTIONS (9)
  - FALL [None]
  - CONCUSSION [None]
  - WEIGHT DECREASED [None]
  - PNEUMONIA [None]
  - HEPATITIS C [None]
  - TREMOR [None]
  - ABASIA [None]
  - DISEASE RECURRENCE [None]
  - FACIAL BONES FRACTURE [None]
